FAERS Safety Report 10217070 (Version 4)
Quarter: 2014Q2

REPORT INFORMATION
  Report Type: Spontaneous
  Country: JP (occurrence: JP)
  Receive Date: 20140604
  Receipt Date: 20140619
  Transmission Date: 20141212
  Serious: Yes (Hospitalization)
  Sender: FDA-Public Use
  Company Number: JP-JNJFOC-20140520117

PATIENT
  Age: 59 Year
  Sex: Male

DRUGS (7)
  1. REMICADE [Suspect]
     Indication: SPONDYLITIS
     Route: 042
     Dates: start: 20130919
  2. REMICADE [Suspect]
     Indication: SPONDYLITIS
     Dosage: 20TH DOSE
     Route: 042
     Dates: start: 20130318
  3. REMICADE [Suspect]
     Indication: SPONDYLITIS
     Dosage: THERAPY DURATION 19 DAYS
     Route: 042
     Dates: start: 20100614
  4. REMICADE [Suspect]
     Indication: SPONDYLITIS
     Route: 042
     Dates: start: 20130919
  5. REMICADE [Suspect]
     Indication: SPONDYLITIS
     Dosage: 20TH DOSE
     Route: 042
     Dates: start: 20130318
  6. REMICADE [Suspect]
     Indication: SPONDYLITIS
     Dosage: THERAPY DURATION 19 DAYS
     Route: 042
     Dates: start: 20100614
  7. METHOTREXATE [Suspect]
     Indication: PRODUCT USED FOR UNKNOWN INDICATION
     Route: 048
     Dates: start: 20110221

REACTIONS (1)
  - Squamous cell carcinoma [Recovered/Resolved]
